FAERS Safety Report 7197614-5 (Version None)
Quarter: 2010Q4

REPORT INFORMATION
  Report Type: 
  Country: None (occurrence: None)
  Receive Date: 20101213
  Receipt Date: 20101124
  Transmission Date: 20110411
  Serious: Yes (Hospitalization)
  Sender: FDA-Public Use
  Company Number: 2010AP002520

PATIENT
  Age: 19 Year
  Sex: Male

DRUGS (3)
  1. TOPIRAMATE [Suspect]
     Indication: EPILEPSY
     Dosage: 100 MG; BID PO
     Route: 048
     Dates: start: 20081201, end: 20090201
  2. METFORMIN HCL [Concomitant]
  3. VALPROATE SODIUM [Concomitant]

REACTIONS (10)
  - AGGRESSION [None]
  - DELUSION [None]
  - EMOTIONAL DISTRESS [None]
  - HALLUCINATION, AUDITORY [None]
  - MEMORY IMPAIRMENT [None]
  - PHYSICAL ASSAULT [None]
  - PSYCHOTIC DISORDER [None]
  - SKIN LACERATION [None]
  - THINKING ABNORMAL [None]
  - UNRESPONSIVE TO STIMULI [None]
